FAERS Safety Report 13599306 (Version 2)
Quarter: 2017Q3

REPORT INFORMATION
  Report Type: Spontaneous
  Country: US (occurrence: US)
  Receive Date: 20170531
  Receipt Date: 20170714
  Transmission Date: 20171127
  Serious: Yes (Other)
  Sender: FDA-Public Use
  Company Number: US-ALLERGAN-1721545US

PATIENT
  Age: 80 Year
  Sex: Female

DRUGS (2)
  1. ARMOUR THYROID [Suspect]
     Active Substance: THYROID, PORCINE
     Indication: HYPOTHYROIDISM
     Dosage: UNK
  2. ARMOUR THYROID [Suspect]
     Active Substance: THYROID, PORCINE
     Indication: HORMONE REPLACEMENT THERAPY
     Dosage: 30 MG, BID
     Route: 048

REACTIONS (5)
  - Product preparation error [Unknown]
  - Palpitations [Recovered/Resolved]
  - Thyroid disorder [Recovered/Resolved]
  - Hypertension [Recovered/Resolved]
  - Accidental overdose [Unknown]

NARRATIVE: CASE EVENT DATE: 2009
